FAERS Safety Report 5777590-X (Version None)
Quarter: 2008Q2

REPORT INFORMATION
  Report Type: 
  Country: None (occurrence: None)
  Receive Date: 20080618
  Receipt Date: 20080606
  Transmission Date: 20081010
  Serious: Yes (Other)
  Sender: FDA-Public Use
  Company Number: GB-ELI_LILLY_AND_COMPANY-GB200806001650

PATIENT
  Age: 72 Year
  Sex: Female
  Weight: 56 kg

DRUGS (10)
  1. CYMBALTA [Suspect]
     Indication: PAIN
     Dosage: 30 MG, UNKNOWN
     Route: 048
     Dates: start: 20080501, end: 20080503
  2. ATENOLOL [Concomitant]
     Dosage: 25 MG, DAILY (1/D)
     Route: 065
  3. CALCICHEW D3 [Concomitant]
     Dosage: 2 D/F, DAILY (1/D)
     Route: 065
  4. CLOPIDOGREL [Concomitant]
     Dosage: 75 MG, DAILY (1/D)
     Route: 065
  5. ACETAMINOPHEN W/ CODEINE [Concomitant]
     Dosage: 1 D/F, UNKNOWN
     Route: 065
  6. DICLOFENAC [Concomitant]
     Dosage: UNK, UNKNOWN
     Route: 061
  7. DIHYDROCODEINE [Concomitant]
     Dosage: 120 MG, 4/D
     Route: 065
  8. NITROGLYCERIN [Concomitant]
     Dosage: 400 UG, UNKNOWN
     Route: 065
  9. LEVOTHYROXINE SODIUM [Concomitant]
     Dosage: 25 MG, DAILY (1/D)
     Route: 065
  10. SIMVASTATIN [Concomitant]
     Dosage: 40 MG, DAILY (1/D)
     Route: 065

REACTIONS (4)
  - CONFUSIONAL STATE [None]
  - FALL [None]
  - HALLUCINATION [None]
  - NIGHTMARE [None]
